FAERS Safety Report 8572890-2 (Version None)
Quarter: 2012Q3

REPORT INFORMATION
  Report Type: 
  Country: None (occurrence: None)
  Receive Date: 20120806
  Receipt Date: 20120803
  Transmission Date: 20120928
  Serious: Yes (Life-Threatening, Other)
  Sender: FDA-Public Use
  Company Number: DE-AMGEN-DEUCT2011057833

PATIENT
  Age: 59 Year
  Sex: Male

DRUGS (13)
  1. CAPECITABINE [Concomitant]
     Indication: GASTRIC CANCER
     Dosage: 1216 MG/M2, QD
     Route: 048
     Dates: start: 20110909
  2. FENISTIL [Concomitant]
     Dosage: UNK
     Dates: start: 20110907, end: 20110908
  3. EPIRUBICIN [Concomitant]
     Indication: GASTRIC CANCER
     Dosage: 50 MG/M2, UNK
     Route: 042
     Dates: start: 20110908
  4. PANTOPRAZOLE [Concomitant]
  5. PANITUMUMAB [Suspect]
     Indication: GASTRIC CANCER
     Dosage: 9 MG/KG, UNK
     Route: 042
     Dates: start: 20110907
  6. RANITIDINE [Concomitant]
     Dosage: UNK
     Dates: start: 20110907, end: 20110908
  7. CISPLATIN [Concomitant]
     Indication: GASTRIC CANCER
     Dosage: 60 MG/M2, UNK
     Route: 042
     Dates: start: 20110908
  8. EMEND [Concomitant]
     Dosage: UNK
     Dates: start: 20110907, end: 20110908
  9. GRANISETRON HYDROCHLORIDE [Concomitant]
     Indication: VOMITING
     Dosage: UNK
     Dates: start: 20110907, end: 20110908
  10. ENOXAPARIN SODIUM [Concomitant]
  11. SIMVASTATIN [Concomitant]
  12. DEXAMETHASONE [Concomitant]
     Dosage: UNK
     Dates: start: 20110907, end: 20110908
  13. BISOPROLOL FUMARATE [Concomitant]

REACTIONS (2)
  - NEUTROPENIA [None]
  - PYREXIA [None]
